FAERS Safety Report 6477641-3 (Version None)
Quarter: 2009Q4

REPORT INFORMATION
  Report Type: 
  Country: None (occurrence: None)
  Receive Date: 20091204
  Receipt Date: 20091204
  Transmission Date: 20100525
  Serious: Yes (Other)
  Sender: FDA-Public Use
  Company Number: None

PATIENT
  Age: 8 Year
  Sex: Male
  Weight: 29.4838 kg

DRUGS (1)
  1. CONCERTA [Suspect]
     Indication: ATTENTION DEFICIT/HYPERACTIVITY DISORDER
     Dosage: ONCE A DAY

REACTIONS (7)
  - ABNORMAL BEHAVIOUR [None]
  - AGGRESSION [None]
  - DEPRESSION [None]
  - HYPOPHAGIA [None]
  - MEMORY IMPAIRMENT [None]
  - POOR QUALITY SLEEP [None]
  - TIC [None]
